FAERS Safety Report 6425161-4 (Version None)
Quarter: 2009Q4

REPORT INFORMATION
  Report Type: 
  Country: None (occurrence: None)
  Receive Date: 20091103
  Receipt Date: 20091028
  Transmission Date: 20100525
  Serious: Yes (Death)
  Sender: FDA-Public Use
  Company Number: IN-GENENTECH-293260

PATIENT
  Age: 92 Year
  Sex: Male

DRUGS (3)
  1. METALYSE [Suspect]
     Indication: ACUTE MYOCARDIAL INFARCTION
     Dosage: 0.5 MG/KG, UNK
     Route: 042
     Dates: start: 20091022, end: 20091022
  2. ORAL HYPOGLYCEMIC [Concomitant]
     Indication: DIABETES MELLITUS
     Dosage: UNK
     Route: 048
  3. ANTI HYPERTENSIVE MEDS [Concomitant]
     Indication: HYPERTENSION
     Dosage: UNK

REACTIONS (1)
  - DEATH [None]
